FAERS Safety Report 8107657-2 (Version None)
Quarter: 2012Q1

REPORT INFORMATION
  Report Type: 
  Country: None (occurrence: None)
  Receive Date: 20120202
  Receipt Date: 20120126
  Transmission Date: 20120608
  Serious: Yes (Other)
  Sender: FDA-Public Use
  Company Number: US-PFIZER INC-2011118184

PATIENT
  Sex: Male
  Weight: 66 kg

DRUGS (10)
  1. ASPIRIN [Concomitant]
     Dosage: 81 MG, DAILY
     Route: 048
  2. HYZAAR [Concomitant]
     Dosage: UNK
  3. LIPITOR [Suspect]
     Dosage: 40 MG, 1X/DAY
     Route: 048
  4. CHAPSTICK CLASSIC [Suspect]
     Indication: SCAB
     Dosage: UNK
     Dates: start: 20110901
  5. HUMULIN N [Concomitant]
     Indication: DIABETES MELLITUS
     Dosage: 10 IU, DAILY
  6. LIPITOR [Suspect]
     Indication: BLOOD CHOLESTEROL INCREASED
     Dosage: 20 MG, 1X/DAY
     Route: 048
     Dates: end: 20110501
  7. HUMULIN R [Concomitant]
     Indication: DIABETES MELLITUS
     Dosage: 20 IU, DAILY
  8. ASPIRIN [Concomitant]
     Dosage: 81 MG, 1X/DAY
  9. LIPITOR [Suspect]
     Dosage: 10 MG, 1X/DAY
     Route: 048
     Dates: end: 20110925
  10. HYZAAR [Concomitant]
     Indication: HYPERTENSION
     Dosage: [HYDROCHLOROTHIAZIDE 25MG]/ [LOSARTAN POTASSIUM 100MG], DAILY
     Route: 048

REACTIONS (9)
  - PRODUCT QUALITY ISSUE [None]
  - DIABETES MELLITUS INADEQUATE CONTROL [None]
  - AGITATION [None]
  - LIP EXFOLIATION [None]
  - PAIN IN EXTREMITY [None]
  - SCAB [None]
  - DRUG INEFFECTIVE [None]
  - LIP DRY [None]
  - MUSCLE SPASMS [None]
